FAERS Safety Report 9105296 (Version 2)
Quarter: 2013Q1

REPORT INFORMATION
  Report Type: Spontaneous
  Country: US (occurrence: US)
  Receive Date: 20130220
  Receipt Date: 20130311
  Transmission Date: 20140127
  Serious: Yes (Hospitalization, Other)
  Sender: FDA-Public Use
  Company Number: US-ELI_LILLY_AND_COMPANY-US201302003323

PATIENT
  Sex: Female
  Weight: 71.66 kg

DRUGS (18)
  1. BYDUREON [Suspect]
     Indication: TYPE 2 DIABETES MELLITUS
     Dosage: 2 MG, WEEKLY (1/W)
     Route: 058
     Dates: start: 20130206
  2. BYETTA [Suspect]
     Indication: TYPE 2 DIABETES MELLITUS
     Dosage: 5 UG, BID
     Route: 058
     Dates: start: 2010, end: 20130205
  3. TOPROL [Concomitant]
     Indication: CARDIAC DISORDER
     Dosage: 25 MG, QD
     Route: 048
  4. DIOVAN [Concomitant]
     Indication: CARDIAC DISORDER
     Dosage: 160 MG, QD
     Route: 048
  5. CYMBALTA [Concomitant]
     Indication: ANXIETY
     Dosage: 30 MG, QD
     Route: 048
  6. SYNTHROID [Concomitant]
     Indication: THYROID DISORDER
     Dosage: 88 UG, QD
     Route: 048
  7. ATIVAN [Concomitant]
     Indication: SLEEP DISORDER
     Dosage: 1 MG, EACH EVENING
     Route: 048
  8. ROPINIROLE [Concomitant]
     Indication: RESTLESS LEGS SYNDROME
     Dosage: 0.25 MG, EACH EVENING
     Route: 048
  9. LIPITOR [Concomitant]
     Indication: BLOOD CHOLESTEROL INCREASED
     Dosage: 20 MG, QD
     Route: 048
  10. FLONASE [Concomitant]
     Indication: SINUS CONGESTION
     Dosage: 2 DF, BID
     Route: 055
  11. OMEPRAZOLE [Concomitant]
     Indication: GASTROOESOPHAGEAL REFLUX DISEASE
     Dosage: 40 MG, QD
     Route: 048
  12. VAGIFEM [Concomitant]
     Indication: VULVOVAGINAL DRYNESS
     Dosage: 10 MG, 2/W
     Route: 067
  13. RESTASIS [Concomitant]
     Indication: DRY EYE
     Dosage: 1 GTT, BID
     Route: 047
  14. AMIODARON [Concomitant]
     Indication: CARDIAC DISORDER
     Dosage: 100 MG, QD
     Route: 048
  15. VITAMIN D [Concomitant]
     Dosage: 1000 IU, BID
  16. ASPIRIN                                 /USA/ [Concomitant]
     Dosage: 81 MG, QD
     Route: 048
  17. VITAMIN B12 [Concomitant]
     Dosage: UNK, QD
  18. MAGNESIUM [Concomitant]
     Dosage: 400 MG, QD
     Route: 048

REACTIONS (3)
  - Coronary artery disease [Not Recovered/Not Resolved]
  - Nausea [Recovering/Resolving]
  - Flatulence [Recovering/Resolving]
